FAERS Safety Report 20084728 (Version 3)
Quarter: 2022Q4

REPORT INFORMATION
  Report Type: Other
  Country: CA (occurrence: None)
  Receive Date: 20211118
  Receipt Date: 20221109
  Transmission Date: 20230112
  Serious: Yes (Other)
  Sender: FDA-Public Use
  Company Number: CA-ROCHE-2953546

PATIENT
  Sex: Female

DRUGS (1)
  1. OCREVUS [Suspect]
     Active Substance: OCRELIZUMAB
     Indication: Multiple sclerosis
     Dosage: 300 MG AT DAY 0 AND 14, THEN 600 MG EVERY 6 MONTH
     Route: 042
     Dates: start: 20211025

REACTIONS (7)
  - Fall [Unknown]
  - Clavicle fracture [Recovering/Resolving]
  - Head injury [Recovering/Resolving]
  - Osteoarthritis [Unknown]
  - Hypoaesthesia [Recovered/Resolved]
  - Vertigo [Unknown]
  - Arthralgia [Unknown]
